FAERS Safety Report 8240476-5 (Version None)
Quarter: 2012Q1

REPORT INFORMATION
  Report Type: 
  Country: None (occurrence: None)
  Receive Date: 20120328
  Receipt Date: 20120326
  Transmission Date: 20120608
  Serious: No
  Sender: FDA-Public Use
  Company Number: US-PFIZER INC-2012078358

PATIENT
  Sex: Male
  Weight: 109 kg

DRUGS (13)
  1. OXYCONTIN [Concomitant]
     Indication: BACK PAIN
     Dosage: 20 MG, DAILY
     Dates: start: 20040101
  2. LISINOPRIL [Concomitant]
     Indication: HYPERTENSION
     Dosage: UNK, DAILY
  3. PRILOSEC [Concomitant]
     Indication: ABDOMINAL DISCOMFORT
     Dosage: 20 MG, 2X/DAY
  4. GLIPIZIDE [Concomitant]
     Indication: DIABETES MELLITUS
     Dosage: 5 MG, 2X/DAY
  5. NEURONTIN [Concomitant]
     Indication: NEUROPATHY PERIPHERAL
     Dosage: 300 MG, 2X/DAY
  6. VITAMIN TAB [Concomitant]
     Dosage: UNK
  7. METFORMIN [Concomitant]
     Indication: DIABETES MELLITUS
     Dosage: 500 MG, 2X/DAY
  8. PANCRELIPASE [Concomitant]
     Indication: PANCREATITIS
     Dosage: 20000 IU, 4X/DAY
  9. METOPROLOL [Concomitant]
     Indication: HYPERTENSION
     Dosage: 25 MG, 2X/DAY
  10. CELEBREX [Suspect]
     Indication: ARTHRITIS
     Dosage: 200 MG, 2X/DAY
     Route: 048
  11. NORCO [Concomitant]
     Indication: BACK PAIN
     Dosage: 10/225 MG, EVERY 6 HRS
     Dates: start: 20120101
  12. FLEXERIL [Concomitant]
     Indication: NEUROPATHY PERIPHERAL
     Dosage: 10 MG, DAILY
  13. SIMVASTATIN [Concomitant]
     Indication: BLOOD CHOLESTEROL ABNORMAL
     Dosage: 20 MG, DAILY

REACTIONS (2)
  - DRUG INEFFECTIVE [None]
  - BACK PAIN [None]
